FAERS Safety Report 13874510 (Version 1)
Quarter: 2017Q3

REPORT INFORMATION
  Report Type: Spontaneous
  Country: US (occurrence: US)
  Receive Date: 20170816
  Receipt Date: 20170816
  Transmission Date: 20171127
  Serious: No
  Sender: FDA-Public Use
  Company Number: US-ROCHE-1091286

PATIENT
  Age: 77 Year
  Sex: Female

DRUGS (18)
  1. LUCENTIS [Suspect]
     Active Substance: RANIBIZUMAB
     Indication: NEOVASCULAR AGE-RELATED MACULAR DEGENERATION
     Route: 050
     Dates: start: 20120720, end: 20120720
  2. LORAZEPAM. [Concomitant]
     Active Substance: LORAZEPAM
     Indication: ANXIETY
     Dosage: 1 TAB EVERY 2 HOURS AS NEEDED.
     Route: 065
     Dates: start: 20090618
  3. IBUPROFEN. [Concomitant]
     Active Substance: IBUPROFEN
     Indication: ARTHRALGIA
     Dosage: 1 TAB EVERY 8 HOURS AS NEEDED
     Route: 065
     Dates: start: 20100616
  4. BACLOFEN. [Concomitant]
     Active Substance: BACLOFEN
     Indication: MUSCLE SPASMS
     Dosage: 1 TABLETS EVERY 8 HOURS AS NEEDED
     Route: 065
     Dates: start: 20110713
  5. NITROSTAT [Concomitant]
     Active Substance: NITROGLYCERIN
     Route: 065
     Dates: start: 20110817
  6. ALDACTONE [Concomitant]
     Active Substance: SPIRONOLACTONE
     Route: 065
     Dates: start: 20110928
  7. LASIX [Concomitant]
     Active Substance: FUROSEMIDE
     Route: 065
     Dates: start: 20110928
  8. BRIMONIDINE [Concomitant]
     Active Substance: BRIMONIDINE TARTRATE
     Dosage: BOTH EYES
     Route: 065
     Dates: start: 20090818
  9. COZAAR [Concomitant]
     Active Substance: LOSARTAN POTASSIUM
     Route: 065
     Dates: start: 20110914
  10. AMLODIPINE [Concomitant]
     Active Substance: AMLODIPINE BESYLATE
     Route: 065
     Dates: start: 20110928
  11. LACTULOSE. [Concomitant]
     Active Substance: LACTULOSE
     Dosage: 10/G/15 ML SYRUP 45 ML MG/ML IN MORNIONG FOLLOWED BY 230 ML DOSES DAILY
     Route: 065
     Dates: start: 20110112
  12. DULCOLAX (BISACODYL) [Concomitant]
     Active Substance: BISACODYL
     Dosage: 1 SUPP DAILY
     Route: 065
     Dates: start: 20120104
  13. VITAMIN B COMPLEX [Concomitant]
     Active Substance: CYANOCOBALAMIN\DEXPANTHENOL\NIACINAMIDE\PYRIDOXINE HYDROCHLORIDE\RIBOFLAVIN 5^-PHOSPHATE SODIUM\THIAMINE HYDROCHLORIDE\VITAMIN B COMPLEX
     Route: 065
     Dates: start: 20110510
  14. ASPIRIN. [Concomitant]
     Active Substance: ASPIRIN
     Route: 065
     Dates: start: 20110817
  15. MORPHINE [Concomitant]
     Active Substance: MORPHINE
     Dosage: 20 MG/ML CONC 10 MG EVRY HOUR AS NEEDED
     Route: 048
     Dates: start: 20110924
  16. POTASSIUM [Concomitant]
     Active Substance: POTASSIUM
     Route: 065
     Dates: start: 20110928
  17. DUONEB [Concomitant]
     Active Substance: ALBUTEROL SULFATE\IPRATROPIUM BROMIDE
     Dosage: INHALATION SOLUTION
     Route: 065
     Dates: start: 20110911
  18. ZOLOFT [Concomitant]
     Active Substance: SERTRALINE HYDROCHLORIDE
     Indication: DEPRESSION
     Route: 065
     Dates: start: 20120112

REACTIONS (2)
  - Lacrimation increased [Recovered/Resolved]
  - Nasal disorder [Unknown]

NARRATIVE: CASE EVENT DATE: 20120720
